FAERS Safety Report 5903124-2 (Version None)
Quarter: 2008Q3

REPORT INFORMATION
  Report Type: 
  Country: None (occurrence: None)
  Receive Date: 20080930
  Receipt Date: 20080919
  Transmission Date: 20090109
  Serious: Yes (Life-Threatening, Hospitalization, Other)
  Sender: FDA-Public Use
  Company Number: ZA-TYCO HEALTHCARE/MALLINCKRODT-T200801543

PATIENT

DRUGS (1)
  1. OPTIRAY 300 [Suspect]
     Indication: COMPUTERISED TOMOGRAM KIDNEY
     Dosage: 125 ML, SINGLE
     Route: 042
     Dates: start: 20080919, end: 20080919

REACTIONS (4)
  - ERYTHEMA [None]
  - FACE OEDEMA [None]
  - RASH [None]
  - URTICARIA [None]
